FAERS Safety Report 5234939-4 (Version None)
Quarter: 2007Q1

REPORT INFORMATION
  Report Type: 
  Country: None (occurrence: None)
  Receive Date: 20070209
  Receipt Date: 20070201
  Transmission Date: 20070707
  Serious: Yes (Other)
  Sender: FDA-Public Use
  Company Number: JP-PFIZER INC-2007009500

PATIENT
  Age: 32 Year
  Sex: Male

DRUGS (3)
  1. SOLANAX [Suspect]
     Indication: ANXIETY
     Dosage: DAILY DOSE:.4MG-FREQ:PRN
     Route: 048
  2. SSRI [Concomitant]
  3. TRICYCLIC ANTIDEPRESSANTS [Concomitant]

REACTIONS (1)
  - BLOOD TRIGLYCERIDES INCREASED [None]
